FAERS Safety Report 4287299-X (Version None)
Quarter: 2004Q1

REPORT INFORMATION
  Report Type: 
  Country: None (occurrence: None)
  Receive Date: 20040205
  Receipt Date: 20040122
  Transmission Date: 20041129
  Serious: Yes (Death, Hospitalization, Other)
  Sender: FDA-Public Use
  Company Number: US-SHR-04-020111

PATIENT
  Age: 47 Year
  Sex: Male

DRUGS (6)
  1. CAMPATH [Suspect]
     Indication: STEM CELL TRANSPLANT
     Dosage: SEE IMAGE
     Route: 042
     Dates: start: 20030514
  2. DONOR LYMPHOCYTE [Suspect]
     Indication: DELAYED ENGRAFTMENT
     Dates: start: 20031107, end: 20031107
  3. FLUDARA [Suspect]
     Indication: STEM CELL TRANSPLANT
     Dosage: 30 MG/M2 DAYS -4,-3,-2, INTRAVENOUS
     Route: 042
     Dates: start: 20030101
  4. TOTAL BODY IRRADIATION [Concomitant]
  5. FK 506 (TACROLIMUS) [Concomitant]
  6. COUMADIN [Concomitant]

REACTIONS (27)
  - ACIDOSIS [None]
  - BRADYCARDIA [None]
  - CHEST PAIN [None]
  - CHILLS [None]
  - COMPLICATIONS OF TRANSPLANT SURGERY [None]
  - DEHYDRATION [None]
  - DELAYED ENGRAFTMENT [None]
  - DIARRHOEA [None]
  - DISEASE PROGRESSION [None]
  - DIZZINESS [None]
  - DRUG INEFFECTIVE [None]
  - ENTEROCOCCAL INFECTION [None]
  - GENERAL PHYSICAL HEALTH DETERIORATION [None]
  - GRAFT VERSUS HOST DISEASE [None]
  - HAEMODIALYSIS [None]
  - HEPATIC ENZYME INCREASED [None]
  - HYPOTENSION [None]
  - IMPLANT SITE INFECTION [None]
  - PNEUMONITIS [None]
  - POLLAKIURIA [None]
  - RASH [None]
  - RENAL FAILURE ACUTE [None]
  - SEPSIS [None]
  - SKIN GRAFT REJECTION [None]
  - STAPHYLOCOCCAL INFECTION [None]
  - STAPHYLOCOCCAL SEPSIS [None]
  - UPPER RESPIRATORY TRACT INFECTION [None]
